FAERS Safety Report 5038265-8 (Version None)
Quarter: 2006Q2

REPORT INFORMATION
  Report Type: 
  Country: None (occurrence: None)
  Receive Date: 20060601
  Receipt Date: 20060124
  Transmission Date: 20061013
  Serious: No
  Sender: FDA-Public Use
  Company Number: 2006PV007591

PATIENT
  Age: 63 Year
  Sex: Male
  Weight: 83.9154 kg

DRUGS (11)
  1. BYETTA [Suspect]
     Indication: DIABETES MELLITUS NON-INSULIN-DEPENDENT
     Dosage: SEE IMAGE
     Route: 058
     Dates: start: 20051216, end: 20060116
  2. BYETTA [Suspect]
     Indication: DIABETES MELLITUS NON-INSULIN-DEPENDENT
     Dosage: SEE IMAGE
     Route: 058
     Dates: start: 20060117, end: 20060125
  3. AMARYL [Concomitant]
  4. ALTACE [Concomitant]
  5. COREG [Concomitant]
  6. ASPIRIN [Concomitant]
  7. VYTORIN [Concomitant]
  8. ZOCOR [Concomitant]
  9. ZETIA [Concomitant]
  10. METFORMIN [Concomitant]
  11. MULTIVITAMIN [Concomitant]

REACTIONS (8)
  - BLOOD GLUCOSE DECREASED [None]
  - BLOOD GLUCOSE INCREASED [None]
  - DYSPEPSIA [None]
  - NASOPHARYNGITIS [None]
  - NAUSEA [None]
  - RESPIRATORY TRACT INFECTION [None]
  - SINUSITIS [None]
  - VOMITING [None]
